FAERS Safety Report 5449726-1 (Version None)
Quarter: 2007Q3

REPORT INFORMATION
  Report Type: 
  Country: None (occurrence: None)
  Receive Date: 20070910
  Receipt Date: 20070828
  Transmission Date: 20080115
  Serious: Yes (Hospitalization)
  Sender: FDA-Public Use
  Company Number: 2006P1000264

PATIENT
  Age: 84 Year
  Sex: Female
  Weight: 65 kg

DRUGS (8)
  1. RETEPLASE (RETEPLASE) [Suspect]
     Indication: ACUTE MYOCARDIAL INFARCTION
     Dosage: 5 IU;X1;IV
     Route: 042
     Dates: start: 20051228, end: 20051228
  2. ABCIXIMAB (ABCIXIMAB) [Suspect]
     Indication: ACUTE MYOCARDIAL INFARCTION
     Dosage: 8.1 MG;X1;IV; 168 MG;X1;IV
     Route: 042
     Dates: start: 20051228, end: 20051228
  3. ABCIXIMAB (ABCIXIMAB) [Suspect]
     Indication: ACUTE MYOCARDIAL INFARCTION
     Dosage: 8.1 MG;X1;IV; 168 MG;X1;IV
     Route: 042
     Dates: start: 20051228, end: 20051228
  4. ASPIRIN [Concomitant]
  5. CLOPIDOGREL [Concomitant]
  6. SPIRAPRIL [Concomitant]
  7. METOPROLOL SUCCINATE [Concomitant]
  8. FLUVASTATIN [Concomitant]

REACTIONS (10)
  - ANGINA PECTORIS [None]
  - BRADYCARDIA [None]
  - CORONARY ARTERY STENOSIS [None]
  - EJECTION FRACTION DECREASED [None]
  - HAEMATOCRIT DECREASED [None]
  - HAEMOGLOBIN DECREASED [None]
  - HIGH DENSITY LIPOPROTEIN INCREASED [None]
  - INJECTION SITE REACTION [None]
  - RED BLOOD CELL COUNT DECREASED [None]
  - SUBCUTANEOUS HAEMATOMA [None]
